FAERS Safety Report 9584781 (Version 1)
Quarter: 2013Q4

REPORT INFORMATION
  Report Type: Spontaneous
  Country: US (occurrence: US)
  Receive Date: 20131002
  Receipt Date: 20131002
  Transmission Date: 20140711
  Serious: No
  Sender: FDA-Public Use
  Company Number: US-AMGEN-USASP2013055979

PATIENT
  Age: 62 Year
  Sex: Female
  Weight: 87.08 kg

DRUGS (1)
  1. ENBREL [Suspect]
     Indication: PSORIATIC ARTHROPATHY
     Dosage: 50 MG, QWK
     Route: 058
     Dates: start: 201307, end: 201308

REACTIONS (4)
  - Injection site erythema [Recovering/Resolving]
  - Injection site reaction [Recovering/Resolving]
  - Injection site swelling [Recovering/Resolving]
  - Injection site pruritus [Recovering/Resolving]
